FAERS Safety Report 4435106-4 (Version None)
Quarter: 2004Q3

REPORT INFORMATION
  Report Type: 
  Country: None (occurrence: None)
  Receive Date: 20040726
  Receipt Date: 20040428
  Transmission Date: 20050211
  Serious: No
  Sender: FDA-Public Use
  Company Number: USA040260292

PATIENT
  Age: 64 Year
  Sex: Female
  Weight: 91 kg

DRUGS (5)
  1. FORTEO [Suspect]
     Indication: OSTEOPOROSIS
     Dosage: 20 UG DAY
     Dates: start: 20040123, end: 20040206
  2. ZOLOFT [Concomitant]
  3. CALCIUM MAGNESIUM ZINC [Concomitant]
  4. MSM (MSM) [Concomitant]
  5. NAPROSYN [Concomitant]

REACTIONS (3)
  - PRURITUS [None]
  - RASH PRURITIC [None]
  - URTICARIA [None]
